FAERS Safety Report 24575249 (Version 1)
Quarter: 2024Q4

REPORT INFORMATION
  Report Type: Spontaneous
  Country: FR (occurrence: FR)
  Receive Date: 20241104
  Receipt Date: 20241104
  Transmission Date: 20250114
  Serious: Yes (Other)
  Sender: CHEPLAPHARM
  Company Number: None

PATIENT
  Age: 27 Year
  Sex: Female

DRUGS (8)
  1. OLANZAPINE [Suspect]
     Active Substance: OLANZAPINE
     Indication: Depression
     Dosage: DAILY DOSE: 10 MILLIGRAM
     Route: 048
     Dates: start: 2022, end: 2023
  2. OLANZAPINE [Suspect]
     Active Substance: OLANZAPINE
     Indication: Anorexia nervosa
     Dosage: DAILY DOSE: 10 MILLIGRAM
     Route: 048
     Dates: start: 2022, end: 2023
  3. OLANZAPINE [Suspect]
     Active Substance: OLANZAPINE
     Indication: Depression
     Dosage: DAILY DOSE: 10 MILLIGRAM
     Route: 048
     Dates: start: 2024, end: 20241015
  4. OLANZAPINE [Suspect]
     Active Substance: OLANZAPINE
     Indication: Anorexia nervosa
     Dosage: DAILY DOSE: 10 MILLIGRAM
     Route: 048
     Dates: start: 2024, end: 20241015
  5. FLUOXETINE HYDROCHLORIDE [Suspect]
     Active Substance: FLUOXETINE HYDROCHLORIDE
     Indication: Depression
     Dosage: DAILY DOSE: 60 MILLIGRAM
     Route: 048
     Dates: start: 2022, end: 2023
  6. FLUOXETINE HYDROCHLORIDE [Suspect]
     Active Substance: FLUOXETINE HYDROCHLORIDE
     Indication: Anorexia nervosa
     Dosage: DAILY DOSE: 60 MILLIGRAM
     Route: 048
     Dates: start: 2022, end: 2023
  7. FLUOXETINE HYDROCHLORIDE [Suspect]
     Active Substance: FLUOXETINE HYDROCHLORIDE
     Indication: Depression
     Dosage: DAILY DOSE: 60 MILLIGRAM
     Route: 048
     Dates: start: 2024
  8. FLUOXETINE HYDROCHLORIDE [Suspect]
     Active Substance: FLUOXETINE HYDROCHLORIDE
     Indication: Anorexia nervosa
     Dosage: DAILY DOSE: 60 MILLIGRAM
     Route: 048
     Dates: start: 2024

REACTIONS (1)
  - Oculogyric crisis [Unknown]

NARRATIVE: CASE EVENT DATE: 20240101
